FAERS Safety Report 7941987-X (Version None)
Quarter: 2011Q4

REPORT INFORMATION
  Report Type: 
  Country: None (occurrence: None)
  Receive Date: 20111122
  Receipt Date: 20111122
  Transmission Date: 20120403
  Serious: Yes (Other)
  Sender: FDA-Public Use
  Company Number: None

PATIENT
  Sex: Female
  Weight: 86.637 kg

DRUGS (1)
  1. VALACYCLOVIR [Suspect]
     Indication: ORAL HERPES
     Dosage: 500 BID ORAL
     Route: 048
     Dates: start: 20100224

REACTIONS (2)
  - DRY MOUTH [None]
  - HEADACHE [None]
